FAERS Safety Report 5973202-0 (Version None)
Quarter: 2008Q4

REPORT INFORMATION
  Report Type: 
  Country: None (occurrence: None)
  Receive Date: 20081201
  Receipt Date: 20081118
  Transmission Date: 20090506
  Serious: Yes (Hospitalization, Other)
  Sender: FDA-Public Use
  Company Number: FR-ELI_LILLY_AND_COMPANY-FR200809005037

PATIENT
  Age: 68 Year
  Sex: Male

DRUGS (8)
  1. GEMZAR [Suspect]
     Indication: LUNG NEOPLASM MALIGNANT
     Dosage: UNK, UNKNOWN
     Route: 042
     Dates: start: 20080516, end: 20080811
  2. CARBOPLATIN [Concomitant]
     Indication: LUNG NEOPLASM MALIGNANT
     Dosage: UNK, UNKNOWN
     Route: 042
     Dates: start: 20080516, end: 20080811
  3. CORTANCYL [Concomitant]
     Dosage: 15 MG, DAILY (1/D)
     Route: 065
  4. DIFFU K [Concomitant]
     Dosage: UNK, UNKNOWN
     Route: 065
  5. FUROSEMIDE [Concomitant]
     Dosage: 40 MG, DAILY (1/D)
     Route: 065
  6. DIAMICRON [Concomitant]
     Dosage: 60 MG, DAILY (1/D)
     Route: 065
  7. COVERSYL [Concomitant]
     Dosage: 8 MG, DAILY (1/D)
     Route: 065
  8. STAGID [Concomitant]
     Dosage: 2 D/F, DAILY (1/D)
     Route: 065

REACTIONS (4)
  - CONGESTIVE CARDIOMYOPATHY [None]
  - CYANOSIS [None]
  - EXTREMITY NECROSIS [None]
  - PERIPHERAL ISCHAEMIA [None]
